FAERS Safety Report 6986673-8 (Version None)
Quarter: 2010Q3

REPORT INFORMATION
  Report Type: 
  Country: None (occurrence: None)
  Receive Date: 20100915
  Receipt Date: 20090723
  Transmission Date: 20110219
  Serious: No
  Sender: FDA-Public Use
  Company Number: US-WYE-H10325009

PATIENT
  Sex: Male
  Weight: 66.74 kg

DRUGS (4)
  1. PRISTIQ [Suspect]
     Indication: DEPRESSION
     Dates: start: 20090717, end: 20090719
  2. PRISTIQ [Suspect]
     Route: 048
     Dates: start: 20090720
  3. BUPRENORPHINE HCL AND NALOXONE HCL [Concomitant]
  4. CLONAZEPAM [Concomitant]

REACTIONS (4)
  - AGITATION [None]
  - ANGER [None]
  - NAUSEA [None]
  - WRONG TECHNIQUE IN DRUG USAGE PROCESS [None]
